FAERS Safety Report 8458992-X (Version None)
Quarter: 2012Q2

REPORT INFORMATION
  Report Type: 
  Country: None (occurrence: None)
  Receive Date: 20120622
  Receipt Date: 20120608
  Transmission Date: 20120825
  Serious: No
  Sender: FDA-Public Use
  Company Number: US-ROCHE-1077175

PATIENT
  Sex: Female

DRUGS (1)
  1. XENICAL [Suspect]
     Indication: PRODUCT USED FOR UNKNOWN INDICATION

REACTIONS (12)
  - HAEMATOCHEZIA [None]
  - UNEVALUABLE EVENT [None]
  - CHROMATURIA [None]
  - WHEEZING [None]
  - PARAESTHESIA ORAL [None]
  - GROIN PAIN [None]
  - RASH [None]
  - DYSPHONIA [None]
  - ORAL DISORDER [None]
  - DYSURIA [None]
  - PHARYNGEAL MASS [None]
  - BLOOD URINE PRESENT [None]
